FAERS Safety Report 8270856-3 (Version None)
Quarter: 2012Q2

REPORT INFORMATION
  Report Type: 
  Country: None (occurrence: None)
  Receive Date: 20120410
  Receipt Date: 20120410
  Transmission Date: 20120825
  Serious: Yes (Other)
  Sender: FDA-Public Use
  Company Number: None

PATIENT
  Sex: Female
  Weight: 74.842 kg

DRUGS (1)
  1. DURAPREP [Suspect]

REACTIONS (8)
  - OEDEMA PERIPHERAL [None]
  - HEADACHE [None]
  - PRURITUS [None]
  - STRESS [None]
  - ERYTHEMA [None]
  - SWELLING FACE [None]
  - PALPITATIONS [None]
  - BLOOD PRESSURE INCREASED [None]
